FAERS Safety Report 7311816 (Version 2)
Quarter: 2014Q1

REPORT INFORMATION
  Report Type: Spontaneous
  Country: US (occurrence: None)
  Receive Date: 20100217
  Receipt Date: 20140218
  Transmission Date: 20141002
  Serious: Yes (Other)
  Sender: FDA-Public Use
  Company Number: 2010S1000888

PATIENT
  Age: 54 Year
  Sex: Female
  Weight: 64.86 kg

DRUGS (13)
  1. FLEET PHOSPHO-SODA [Suspect]
     Indication: COLONOSCOPY
     Dosage: 2 IN 24 HOURS
     Route: 048
     Dates: start: 20081028, end: 20091029
  2. CITRATE OF MAGNESIA [Suspect]
     Indication: COLONOSCOPY
     Dosage: 10 OUNCE, 1 IN 24 HOURS
     Route: 048
     Dates: start: 20081028, end: 20081028
  3. LISINOPRIL (LISINOPRIL) [Concomitant]
  4. NIFEDIAC (NIFEDIPINE) [Concomitant]
  5. FLEXERIL (CYCLOBENZAPRINE HYDROCHLORIDE) [Concomitant]
  6. DARVOCET (PARACETAMOL, DEXTROPROPOXYPHENE HYDROCHLORIDE) [Concomitant]
  7. TRAZODONE (TRAZODONE) [Concomitant]
  8. ACTOS (PIOGLITAZONE HYDROCHLORIDE) [Concomitant]
  9. FAMOTIDINE (FAMOTIDINE) [Concomitant]
  10. DIOVAN HCT (HYDROCHLOROTHIAZIDE, VALSARTAN) [Concomitant]
  11. ADVAIR (FLUTICASONE PROPIONATE, SALMETEROL XINAFOATE) [Concomitant]
  12. METFORMIN (METFORMIN) [Concomitant]
  13. LANTUS [Concomitant]

REACTIONS (4)
  - Renal disorder [None]
  - Renal impairment [None]
  - Musculoskeletal pain [None]
  - Pain in extremity [None]
